FAERS Safety Report 7527009-3 (Version None)
Quarter: 2011Q2

REPORT INFORMATION
  Report Type: 
  Country: None (occurrence: None)
  Receive Date: 20110606
  Receipt Date: 20110525
  Transmission Date: 20111010
  Serious: Yes (Hospitalization)
  Sender: FDA-Public Use
  Company Number: BE-BAYER-2011-044678

PATIENT
  Age: 83 Year
  Sex: Male

DRUGS (8)
  1. AVELOX [Suspect]
     Indication: PNEUMONIA
     Dosage: UNK
     Dates: start: 20110413, end: 20110415
  2. CORDARONE [Concomitant]
     Indication: ATRIAL FIBRILLATION
     Dosage: UNK
     Dates: end: 20110415
  3. LASIX [Concomitant]
  4. TRITACE [Concomitant]
  5. CRESTOR [Concomitant]
     Dosage: 10 MG, UNK
  6. POTASSIUM CHLORIDE [Concomitant]
  7. CARDIOASPIRINE [Concomitant]
  8. TERAZOSABB [Concomitant]

REACTIONS (2)
  - ELECTROCARDIOGRAM QT PROLONGED [None]
  - BRADYCARDIA [None]
